FAERS Safety Report 8613354-7 (Version None)
Quarter: 2012Q3

REPORT INFORMATION
  Report Type: 
  Country: None (occurrence: None)
  Receive Date: 20120822
  Receipt Date: 20120806
  Transmission Date: 20120928
  Serious: Yes (Other)
  Sender: FDA-Public Use
  Company Number: JP-009507513-1208JPN003952

PATIENT

DRUGS (8)
  1. REBETOL [Suspect]
     Indication: HEPATITIS C
     Route: 048
     Dates: start: 20120521, end: 20120610
  2. PEG-INTRON [Suspect]
     Indication: HEPATITIS C
     Dosage: 1.5MCG/KG/WEEK
     Route: 058
     Dates: start: 20120521, end: 20120604
  3. PEG-INTRON [Suspect]
     Dosage: 1MCG/KG/WEEK
     Route: 058
     Dates: start: 20120611, end: 20120618
  4. TELAVIC [Suspect]
     Route: 048
     Dates: start: 20120702
  5. REBETOL [Suspect]
     Route: 048
     Dates: start: 20120611
  6. PEG-INTRON [Suspect]
     Dosage: 0.8MCG/KG/WEEK
     Route: 058
     Dates: start: 20120625
  7. TELAVIC [Suspect]
     Route: 048
     Dates: start: 20120611, end: 20120701
  8. TELAVIC [Suspect]
     Indication: HEPATITIS C
     Route: 048
     Dates: start: 20120521, end: 20120610

REACTIONS (1)
  - NAUSEA [None]
